FAERS Safety Report 21735485 (Version 1)
Quarter: 2022Q4

REPORT INFORMATION
  Report Type: Spontaneous
  Country: US (occurrence: US)
  Receive Date: 20221215
  Receipt Date: 20221215
  Transmission Date: 20230112
  Serious: Yes (Other)
  Sender: FDA-Public Use
  Company Number: US-ELI_LILLY_AND_COMPANY-US202212005190

PATIENT
  Sex: Male

DRUGS (1)
  1. TRULICITY [Suspect]
     Active Substance: DULAGLUTIDE
     Indication: Product used for unknown indication
     Dosage: 0.75 MG, UNKNOWN
     Route: 065
     Dates: start: 202211

REACTIONS (10)
  - Dysphagia [Unknown]
  - Cough [Unknown]
  - Sleep disorder due to a general medical condition [Unknown]
  - Chest pain [Unknown]
  - Pain in extremity [Unknown]
  - Dyspepsia [Unknown]
  - Decreased appetite [Unknown]
  - Constipation [Unknown]
  - Nausea [Unknown]
  - Bowel movement irregularity [Unknown]
